FAERS Safety Report 4302461-5 (Version None)
Quarter: 2004Q1

REPORT INFORMATION
  Report Type: 
  Country: None (occurrence: None)
  Receive Date: 20040218
  Receipt Date: 20040115
  Transmission Date: 20041129
  Serious: Yes (Other)
  Sender: FDA-Public Use
  Company Number: 200317182US

PATIENT
  Age: 81 Year
  Sex: Male

DRUGS (6)
  1. LANTUS [Suspect]
     Indication: DIABETES MELLITUS INSULIN-DEPENDENT
     Dosage: 12 U HS SC
     Dates: start: 20020701
  2. HUMALOG [Concomitant]
  3. LIPITOR [Concomitant]
  4. ZITHROMAX [Concomitant]
  5. DOCUSATE SODIUM (COLACE) [Concomitant]
  6. FOSAMAX [Concomitant]

REACTIONS (1)
  - HYPOGLYCAEMIA [None]
